FAERS Safety Report 23143803 (Version 1)
Quarter: 2023Q4

REPORT INFORMATION
  Report Type: Spontaneous
  Country: CN (occurrence: CN)
  Receive Date: 20231103
  Receipt Date: 20231103
  Transmission Date: 20240110
  Serious: Yes (Other)
  Sender: FDA-Public Use
  Company Number: CN-BAXTER-2023BAX034595

PATIENT
  Age: 55 Year
  Sex: Male
  Weight: 65 kg

DRUGS (8)
  1. CYCLOPHOSPHAMIDE [Suspect]
     Active Substance: CYCLOPHOSPHAMIDE
     Indication: Plasma cell myeloma
     Dosage: 0.5 G, DILUTED WITH SODIUM CHLORIDE (100 ML), DAY 1, AS A PART OF KCD REGIMEN
     Route: 041
     Dates: start: 20230810, end: 20230810
  2. CYCLOPHOSPHAMIDE [Suspect]
     Active Substance: CYCLOPHOSPHAMIDE
     Indication: Plasma cell myeloma
  3. SODIUM CHLORIDE [Suspect]
     Active Substance: SODIUM CHLORIDE
     Indication: Medication dilution
     Dosage: 100 ML, USED TO DILUTE CYCLOPHOSPHAMIDE (0.5 G)
     Route: 041
     Dates: start: 20230810, end: 20230810
  4. DEXTROSE [Suspect]
     Active Substance: DEXTROSE\DEXTROSE MONOHYDRATE
     Indication: Medication dilution
     Dosage: 100 ML (5% SOLUTION), USED TO DILUTE CARFILZOMIB (50 MG)
     Route: 041
     Dates: start: 20230810, end: 20230811
  5. KYPROLIS [Suspect]
     Active Substance: CARFILZOMIB
     Indication: Plasma cell myeloma
     Dosage: 50 MG, DILUTED WITH 5% GLUCOSE SOLUTION (100 ML), DAY 1 TO DAY 2, AS A PART OF KCD REGIMEN
     Route: 041
     Dates: start: 20230810, end: 20230811
  6. KYPROLIS [Suspect]
     Active Substance: CARFILZOMIB
     Indication: Plasma cell myeloma
  7. DEXAMETHASONE [Suspect]
     Active Substance: DEXAMETHASONE
     Indication: Plasma cell myeloma
     Dosage: UNK, AS A PART OF KCD REGIMEN
     Route: 065
  8. DEXAMETHASONE [Suspect]
     Active Substance: DEXAMETHASONE
     Indication: Plasma cell myeloma

REACTIONS (1)
  - Bicytopenia [Recovering/Resolving]

NARRATIVE: CASE EVENT DATE: 20230821
